FAERS Safety Report 8991066 (Version 1)
Quarter: 2012Q4

REPORT INFORMATION
  Report Type: Spontaneous
  Country: US (occurrence: None)
  Receive Date: 20121227
  Receipt Date: 20121227
  Transmission Date: 20130627
  Serious: Yes (Death)
  Sender: FDA-Public Use
  Company Number: None

PATIENT
  Age: 64 Year
  Sex: Female
  Weight: 55.34 kg

DRUGS (1)
  1. REMICADE [Suspect]
     Indication: RHEUMATOID ARTHRITIS
     Dosage: 7.0mg/kg q8 weeks IV
     Route: 042
     Dates: start: 20041101, end: 20110401

REACTIONS (3)
  - Septic shock [None]
  - Bronchopulmonary aspergillosis [None]
  - Pulmonary cavitation [None]
